FAERS Safety Report 16042526 (Version 1)
Quarter: 2019Q1

REPORT INFORMATION
  Report Type: Spontaneous
  Country: US (occurrence: US)
  Receive Date: 20190306
  Receipt Date: 20190306
  Transmission Date: 20190418
  Serious: Yes (Other)
  Sender: FDA-Public Use
  Company Number: None

PATIENT
  Sex: Female
  Weight: 71.1 kg

DRUGS (6)
  1. CLEAR EYES PURE RELIEF FOR DRY EYES [Suspect]
     Active Substance: GLYCERIN
     Indication: DRY EYE
     Dosage: ?          QUANTITY:1 DROP(S);?
     Route: 047
     Dates: start: 20190206, end: 20190206
  2. VITAMIN E [Concomitant]
     Active Substance: .ALPHA.-TOCOPHEROL
  3. METOPROLOL. [Concomitant]
     Active Substance: METOPROLOL
  4. WARFARIN [Concomitant]
     Active Substance: WARFARIN
  5. ATORVASTATIN [Concomitant]
     Active Substance: ATORVASTATIN
  6. LEVOTHYROXINE. [Concomitant]
     Active Substance: LEVOTHYROXINE

REACTIONS (4)
  - Burning sensation [None]
  - Eye irritation [None]
  - Pain [None]
  - Tinnitus [None]

NARRATIVE: CASE EVENT DATE: 20190206
